FAERS Safety Report 5336485-6 (Version None)
Quarter: 2007Q2

REPORT INFORMATION
  Report Type: 
  Country: None (occurrence: None)
  Receive Date: 20070524
  Receipt Date: 20070509
  Transmission Date: 20071010
  Serious: Yes (Other)
  Sender: FDA-Public Use
  Company Number: FSC_00113_2007

PATIENT
  Sex: Male
  Weight: 143 kg

DRUGS (4)
  1. ISOPTIN [Suspect]
     Indication: HYPERTENSION
     Dosage: ORAL
     Route: 048
     Dates: start: 20030101
  2. ETORICOXIB (ETORICOXIB) 90 MG [Suspect]
     Indication: ARTHROPATHY
     Dosage: 90 MG QS ORAL
     Route: 048
     Dates: start: 20070216, end: 20070314
  3. CHLORTALIDONE (CHLORTALIDONE) 50 MG [Suspect]
     Indication: HYPERTENSION
     Dosage: ORAL
     Route: 048
     Dates: end: 20030101
  4. IRBESARTAN [Suspect]
     Indication: HYPERTENSION
     Dosage: ORAL
     Route: 048
     Dates: start: 20030101

REACTIONS (2)
  - DRUG INTERACTION [None]
  - HYPERTENSIVE CRISIS [None]
